FAERS Safety Report 5641744-3 (Version None)
Quarter: 2008Q1

REPORT INFORMATION
  Report Type: 
  Country: None (occurrence: None)
  Receive Date: 20080227
  Receipt Date: 20080220
  Transmission Date: 20080703
  Serious: Yes (Other)
  Sender: FDA-Public Use
  Company Number: ZA-AVENTIS-200811641GDDC

PATIENT
  Age: 41 Year
  Sex: Female
  Weight: 107 kg

DRUGS (4)
  1. LANTUS [Suspect]
     Route: 058
     Dates: start: 20071001
  2. APIDRA [Suspect]
     Dosage: DOSE: 10-12-14; FREQUENCY: BEFORE MEALS
     Route: 058
     Dates: start: 20071001
  3. GLUCOPHAGE [Concomitant]
     Dosage: DOSE QUANTITY: 1
     Route: 048
     Dates: start: 20030101
  4. PREXUM [Concomitant]
     Indication: HYPERTENSION
     Route: 048
     Dates: start: 20030101

REACTIONS (1)
  - WEIGHT INCREASED [None]
